FAERS Safety Report 4702240-0 (Version None)
Quarter: 2005Q2

REPORT INFORMATION
  Report Type: 
  Country: None (occurrence: None)
  Receive Date: 20050628
  Receipt Date: 20050628
  Transmission Date: 20051028
  Serious: No
  Sender: FDA-Public Use
  Company Number: None

PATIENT
  Sex: Female
  Weight: 55 kg

DRUGS (4)
  1. CYTARABINE [Suspect]
     Indication: ACUTE MYELOID LEUKAEMIA
     Dosage: ISEE IMAGE) GIVEN AT TIME OF DIAGNOSTIC LP OR DAY 1
     Dates: start: 20050422
  2. DAUNORUBICIN [Suspect]
     Dosage: IV OVER 6 HOURS 50 MG/M2 DOSE (1.67 MG/KG ; BSA{0.6 M2 ) TOTAL OF 3 DOSES
     Route: 042
  3. ETOPOSIDE [Suspect]
     Dosage: IV OVER 4 HOURS 100 MG/M2/DOSE (3.3 MG/KG; BSA { 0.3 M2) TOTAL OF 5 DOSES
     Route: 042
  4. GEMTUZUMAB OZOGAMICIN [Suspect]
     Dosage: SEE IMAGE

REACTIONS (13)
  - ACUTE RESPIRATORY DISTRESS SYNDROME [None]
  - CHILLS [None]
  - ECHOCARDIOGRAM ABNORMAL [None]
  - EJECTION FRACTION DECREASED [None]
  - FEBRILE NEUTROPENIA [None]
  - HAEMODIALYSIS [None]
  - HYPOKALAEMIA [None]
  - PLEURAL EFFUSION [None]
  - PULMONARY OEDEMA [None]
  - RENAL FAILURE [None]
  - SEPTIC SHOCK [None]
  - STREPTOCOCCAL INFECTION [None]
  - VENTRICULAR HYPOKINESIA [None]
